FAERS Safety Report 21325053 (Version 1)
Quarter: 2022Q3

REPORT INFORMATION
  Report Type: Spontaneous
  Country: GR (occurrence: GR)
  Receive Date: 20220912
  Receipt Date: 20220912
  Transmission Date: 20221026
  Serious: Yes (Other)
  Sender: FDA-Public Use
  Company Number: GR-VIANEX-20220734

PATIENT
  Age: 30 Year
  Sex: Male

DRUGS (3)
  1. DORZOLAMIDE [Suspect]
     Active Substance: DORZOLAMIDE
     Indication: Product used for unknown indication
     Dosage: OCULAR USE
     Route: 047
  2. DEXAMETHASONE [Suspect]
     Active Substance: DEXAMETHASONE
     Indication: COVID-19
     Route: 042
  3. METHYLPREDNISOLONE [Suspect]
     Active Substance: METHYLPREDNISOLONE
     Indication: COVID-19
     Route: 048

REACTIONS (2)
  - Central serous chorioretinopathy [Recovered/Resolved with Sequelae]
  - Drug ineffective [Unknown]
